FAERS Safety Report 6848556-3 (Version None)
Quarter: 2010Q3

REPORT INFORMATION
  Report Type: 
  Country: None (occurrence: None)
  Receive Date: 20100716
  Receipt Date: 20100707
  Transmission Date: 20110219
  Serious: Yes (Hospitalization, Other)
  Sender: FDA-Public Use
  Company Number: JP-PFIZER INC-2010084292

PATIENT
  Age: 75 Year
  Sex: Female
  Weight: 47.6 kg

DRUGS (7)
  1. METHYLPREDNISOLONE SODIUM SUCCINATE [Suspect]
     Dosage: 500 MG, UNK
     Route: 042
  2. ACTIVASE [Concomitant]
     Dosage: UNK
     Route: 042
  3. WARFARIN [Concomitant]
     Dosage: 2 MG, UNK
  4. FUROSEMIDE [Concomitant]
     Dosage: 5 MG, UNK
  5. ATENOLOL [Concomitant]
     Dosage: 25 MG, UNK
  6. ISOSORBIDE DINITRATE [Concomitant]
     Dosage: 40 MG, UNK
  7. IMIDAPRIL [Concomitant]
     Dosage: 10 MG, DAILY

REACTIONS (1)
  - CEREBRAL INFARCTION [None]
